FAERS Safety Report 7906827-3 (Version None)
Quarter: 2011Q4

REPORT INFORMATION
  Report Type: 
  Country: None (occurrence: None)
  Receive Date: 20111110
  Receipt Date: 20111102
  Transmission Date: 20120403
  Serious: Yes (Other)
  Sender: FDA-Public Use
  Company Number: US-JNJFOC-20111102064

PATIENT
  Age: 59 Year
  Sex: Female
  Weight: 81.65 kg

DRUGS (15)
  1. LAMICTAL [Concomitant]
     Indication: BIPOLAR DISORDER
     Route: 065
  2. BENGAY ULTRA STRENGTH TUBE [Suspect]
     Indication: MUSCULOSKELETAL DISCOMFORT
     Dosage: SMALL AMOUNT, TWICE
     Route: 061
     Dates: start: 20111101, end: 20111102
  3. LASIX [Concomitant]
     Indication: FLUID RETENTION
     Route: 065
  4. CYMBALTA [Concomitant]
     Indication: DEPRESSION
     Route: 065
  5. BENGAY ULTRA STRENGTH TUBE [Suspect]
     Indication: PAIN
     Dosage: SMALL AMOUNT, TWICE
     Route: 061
     Dates: start: 20111101, end: 20111102
  6. LORTAB [Concomitant]
     Indication: ARTHRALGIA
     Dosage: EVERY 4 TO 6 HOURS
     Route: 065
  7. CYMBALTA [Concomitant]
     Indication: PAIN
     Route: 065
  8. OXYGEN [Concomitant]
     Indication: RESPIRATORY DISTRESS
     Dosage: 2-3L AS NEEDED FOR RESPIRATORY DISTRESS
     Route: 065
  9. BUSPAR [Concomitant]
     Indication: DEPRESSION
     Route: 065
  10. ZESTORETIC [Concomitant]
     Indication: BLOOD PRESSURE
     Route: 065
  11. AMBIEN [Concomitant]
     Indication: SLEEP DISORDER THERAPY
     Route: 065
  12. SIMVASTATIN [Concomitant]
     Indication: BLOOD CHOLESTEROL INCREASED
     Route: 065
  13. METFORMIN HCL [Concomitant]
     Indication: DIABETES MELLITUS
     Route: 065
  14. INVEGA [Concomitant]
     Indication: MENTAL DISORDER
     Route: 065
  15. OXYGEN [Concomitant]
     Indication: CHRONIC OBSTRUCTIVE PULMONARY DISEASE
     Dosage: 2-3L AS NEEDED FOR RESPIRATORY DISTRESS
     Route: 065

REACTIONS (4)
  - VOMITING [None]
  - BLOOD GLUCOSE DECREASED [None]
  - DIARRHOEA [None]
  - LOSS OF CONSCIOUSNESS [None]
